FAERS Safety Report 19353289 (Version 1)
Quarter: 2021Q2

REPORT INFORMATION
  Report Type: Spontaneous
  Country: US (occurrence: US)
  Receive Date: 20210601
  Receipt Date: 20210601
  Transmission Date: 20210717
  Serious: Yes (Other)
  Sender: FDA-Public Use
  Company Number: US-TARO PHARMACEUTICALS USA, INC.-2112217

PATIENT
  Sex: Male

DRUGS (2)
  1. FLUOROURACIL. [Suspect]
     Active Substance: FLUOROURACIL
     Indication: PRECANCEROUS CELLS PRESENT
     Route: 061
     Dates: start: 2020
  2. CALCIPOTRIENE. [Suspect]
     Active Substance: CALCIPOTRIENE
     Route: 061

REACTIONS (3)
  - Haemorrhage [Not Recovered/Not Resolved]
  - Therapeutic product effect incomplete [Not Recovered/Not Resolved]
  - Erythema [Not Recovered/Not Resolved]
